FAERS Safety Report 4276082-7 (Version None)
Quarter: 2004Q1

REPORT INFORMATION
  Report Type: 
  Country: None (occurrence: None)
  Receive Date: 20040121
  Receipt Date: 20030818
  Transmission Date: 20041129
  Serious: No
  Sender: FDA-Public Use
  Company Number: US-GLAXOSMITHKLINE-A0422886A

PATIENT
  Age: 3 Year

DRUGS (1)
  1. VALTREX [Suspect]
     Route: 048
     Dates: start: 20030813, end: 20030813

REACTIONS (3)
  - ACCIDENTAL EXPOSURE [None]
  - AGGRESSION [None]
  - DIARRHOEA [None]
